FAERS Safety Report 7426150-3 (Version None)
Quarter: 2011Q2

REPORT INFORMATION
  Report Type: 
  Country: None (occurrence: None)
  Receive Date: 20110420
  Receipt Date: 20110407
  Transmission Date: 20111010
  Serious: Yes (Hospitalization)
  Sender: FDA-Public Use
  Company Number: US-JNJFOC-20110404010

PATIENT
  Sex: Female
  Weight: 46.6 kg

DRUGS (14)
  1. PROBIOTICS [Concomitant]
  2. TRIAMCINOLONE [Concomitant]
     Route: 061
  3. SALICYLIC ACID [Concomitant]
     Route: 061
  4. REMICADE [Suspect]
     Indication: INFLAMMATORY BOWEL DISEASE
     Route: 042
  5. BENTYL [Concomitant]
  6. PROZAC [Concomitant]
  7. BACTROBAN [Concomitant]
     Route: 061
  8. PRILOSEC [Concomitant]
  9. CLIOQUINOL [Concomitant]
  10. METHOTREXATE [Concomitant]
  11. MESALAMINE [Concomitant]
  12. ZANTAC [Concomitant]
  13. ZYRTEC [Concomitant]
  14. WELCHOL [Concomitant]

REACTIONS (2)
  - PYELONEPHRITIS [None]
  - PYREXIA [None]
